FAERS Safety Report 8986535 (Version 1)
Quarter: 2012Q4

REPORT INFORMATION
  Report Type: 
  Country: US (occurrence: US)
  Receive Date: 20121227
  Receipt Date: 20121227
  Transmission Date: 20130627
  Serious: No
  Sender: FDA-Public Use
  Company Number: US-ASTRAZENECA-2012SE94562

PATIENT
  Age: 58 Year
  Sex: Female
  Weight: 87.6 kg

DRUGS (6)
  1. NEXIUM [Suspect]
     Route: 048
     Dates: start: 20080506
  2. CLONAZEPAM [Concomitant]
     Route: 048
     Dates: start: 20080506
  3. DIOVAN HCT [Concomitant]
     Dosage: 160-12.5 MG TABS TAKE 1 TABLET BY MOUTH EVERY DAY
     Dates: start: 201108
  4. NITROGLYCERINE [Concomitant]
     Indication: CHEST PAIN
     Dosage: 1 TABLET UNDER TONGUE AS NEEDED
     Route: 060
     Dates: start: 201108
  5. ASPIRIN [Concomitant]
     Route: 048
     Dates: start: 201108
  6. FISH OIL [Concomitant]
     Route: 048
     Dates: start: 201108

REACTIONS (3)
  - Osteoarthritis [Unknown]
  - Musculoskeletal pain [Unknown]
  - Arthralgia [Unknown]
